FAERS Safety Report 20580874 (Version 5)
Quarter: 2022Q2

REPORT INFORMATION
  Report Type: Spontaneous
  Country: JP (occurrence: JP)
  Receive Date: 20220311
  Receipt Date: 20220428
  Transmission Date: 20220721
  Serious: Yes (Other)
  Sender: FDA-Public Use
  Company Number: JP-ALXN-A202203004AA

PATIENT
  Age: 6 Decade
  Sex: Male

DRUGS (4)
  1. SOLIRIS [Suspect]
     Active Substance: ECULIZUMAB
     Indication: Atypical haemolytic uraemic syndrome
     Dosage: 900 MG, SINGLE
     Route: 042
     Dates: start: 20220314, end: 20220314
  2. ULTOMIRIS [Suspect]
     Active Substance: RAVULIZUMAB-CWVZ
     Indication: Atypical haemolytic uraemic syndrome
     Dosage: 2700 MG, SINGLE
     Route: 042
     Dates: start: 20220303, end: 20220303
  3. POLARAMINE [Concomitant]
     Active Substance: DEXCHLORPHENIRAMINE MALEATE
     Indication: Prophylaxis
     Dosage: 5 MG, UNK
     Route: 042
     Dates: start: 20220303
  4. PREDONINE [Concomitant]
     Active Substance: PREDNISOLONE
     Indication: Prophylaxis
     Dosage: 20 MG, UNK
     Route: 048
     Dates: start: 20220302, end: 20220303

REACTIONS (4)
  - Anaphylactic reaction [Recovered/Resolved]
  - Hiccups [Recovered/Resolved]
  - Total complement activity increased [Unknown]
  - Drug ineffective [Unknown]

NARRATIVE: CASE EVENT DATE: 20220303
